FAERS Safety Report 7607250-1 (Version None)
Quarter: 2011Q3

REPORT INFORMATION
  Report Type: 
  Country: None (occurrence: None)
  Receive Date: 20110712
  Receipt Date: 20110712
  Transmission Date: 20111222
  Serious: Yes (Hospitalization)
  Sender: FDA-Public Use
  Company Number: None

PATIENT
  Age: 63 Year
  Sex: Male
  Weight: 86 kg

DRUGS (2)
  1. IBUPROFEN [Suspect]
     Dosage: 800 MG BID PO
     Route: 048
     Dates: start: 20110406, end: 20110525
  2. ASPIRIN [Suspect]
     Dosage: 81 MG EVERY DAY PO
     Route: 048
     Dates: start: 20071121, end: 20110525

REACTIONS (6)
  - MELAENA [None]
  - HAEMATEMESIS [None]
  - HAEMOGLOBIN DECREASED [None]
  - TACHYCARDIA [None]
  - GASTRIC HAEMORRHAGE [None]
  - HAEMATOCRIT DECREASED [None]
